FAERS Safety Report 8113320-4 (Version None)
Quarter: 2012Q1

REPORT INFORMATION
  Report Type: 
  Country: None (occurrence: None)
  Receive Date: 20120203
  Receipt Date: 20120127
  Transmission Date: 20120608
  Serious: Yes (Life-Threatening)
  Sender: FDA-Public Use
  Company Number: PHHO2012ZA001868

PATIENT
  Sex: Male
  Weight: 123 kg

DRUGS (12)
  1. SIMVASTATIN [Concomitant]
  2. METFORMIN HCL [Concomitant]
  3. DIGOXIN [Suspect]
  4. NEBIVOLOL [Concomitant]
  5. HYDRALAZINE HCL [Concomitant]
  6. ENALAPRIL MALEATE [Suspect]
     Indication: CARDIAC FAILURE CHRONIC
     Dosage: DOUBLE BLIND
     Route: 048
     Dates: start: 20110322, end: 20111220
  7. BLINDED NO TREATMENT RECEIVED [Suspect]
     Indication: CARDIAC FAILURE CHRONIC
     Dosage: DOUBLE BLIND
     Route: 048
     Dates: start: 20110322, end: 20111220
  8. SPIRONOLACTONE [Concomitant]
  9. WARFARIN SODIUM [Concomitant]
  10. PERINDOPRIL ERBUMINE [Concomitant]
  11. VALSARTAN [Suspect]
     Indication: CARDIAC FAILURE CHRONIC
     Dosage: DOUBLE BLIND
     Route: 048
     Dates: start: 20110322, end: 20111220
  12. AMIODARONE HCL [Concomitant]

REACTIONS (5)
  - RENAL FAILURE ACUTE [None]
  - HYPERKALAEMIA [None]
  - MYOCARDIAL ISCHAEMIA [None]
  - BRADYARRHYTHMIA [None]
  - CONCOMITANT DISEASE PROGRESSION [None]
